FAERS Safety Report 8014070-5 (Version None)
Quarter: 2011Q4

REPORT INFORMATION
  Report Type: 
  Country: None (occurrence: None)
  Receive Date: 20111229
  Receipt Date: 20111107
  Transmission Date: 20120403
  Serious: Yes (Hospitalization, Other)
  Sender: FDA-Public Use
  Company Number: US-ROCHE-1012967

PATIENT

DRUGS (6)
  1. HERCEPTIN [Suspect]
     Indication: BREAST CANCER
     Dosage: LOADING DOSE
     Route: 042
     Dates: start: 20010620, end: 20011128
  2. HERCEPTIN [Suspect]
     Route: 042
  3. DOXORUBICIN HCL [Suspect]
     Indication: BREAST CANCER
     Route: 042
     Dates: start: 20010620
  4. TAMOXIFEN CITRATE [Suspect]
     Indication: BREAST CANCER
     Route: 048
  5. PACLITAXEL [Suspect]
     Indication: BREAST CANCER
     Route: 042
     Dates: start: 20010620, end: 20011128
  6. CYCLOPHOSPHAMIDE [Suspect]
     Indication: BREAST CANCER
     Route: 042
     Dates: start: 20010620

REACTIONS (5)
  - SINUS TACHYCARDIA [None]
  - PLEURAL EFFUSION [None]
  - LEFT VENTRICULAR DYSFUNCTION [None]
  - DYSPNOEA [None]
  - PAIN [None]
